FAERS Safety Report 7725012-1 (Version None)
Quarter: 2011Q3

REPORT INFORMATION
  Report Type: 
  Country: None (occurrence: None)
  Receive Date: 20110901
  Receipt Date: 20110831
  Transmission Date: 20111222
  Serious: Yes (Death)
  Sender: FDA-Public Use
  Company Number: US-MYLANLABS-2010S1002001

PATIENT
  Age: 49 Year
  Sex: Female
  Weight: 113.4 kg

DRUGS (9)
  1. CLORAZEPATE DIPOTASSIUM [Concomitant]
  2. FENTANYL-100 [Suspect]
     Indication: BACK PAIN
     Dosage: CHANGES PATCHES Q3D
     Route: 062
     Dates: start: 20070401, end: 20080214
  3. HYDROCODONE BITARTRATE AND ACETAMINOPHEN [Concomitant]
     Dosage: 10MG/325MG
  4. AMBIEN CR [Concomitant]
     Indication: INSOMNIA
  5. VALIUM [Concomitant]
     Dates: end: 20080211
  6. CYMBALTA [Concomitant]
  7. FENTANYL-100 [Suspect]
     Indication: PAIN
     Dosage: CHANGES PATCHES Q3D
     Route: 062
     Dates: start: 20070401, end: 20080214
  8. DIOVAN HCT [Concomitant]
     Dosage: 320MG/25MG
  9. LUNESTA [Concomitant]

REACTIONS (5)
  - OVERDOSE [None]
  - TOXICITY TO VARIOUS AGENTS [None]
  - ANOXIA [None]
  - CARDIO-RESPIRATORY ARREST [None]
  - ISCHAEMIC HEPATITIS [None]
